FAERS Safety Report 10186056 (Version 1)
Quarter: 2014Q2

REPORT INFORMATION
  Report Type: Spontaneous
  Country: FR (occurrence: FR)
  Receive Date: 20140521
  Receipt Date: 20140521
  Transmission Date: 20141212
  Serious: Yes (Life-Threatening, Hospitalization)
  Sender: FDA-Public Use
  Company Number: FR-PFIZER INC-2014135813

PATIENT
  Age: 22 Year
  Sex: Female

DRUGS (6)
  1. LYRICA [Suspect]
     Dosage: 150 MG, 3X/DAY
     Route: 048
     Dates: start: 20130415
  2. RIVOTRIL [Suspect]
     Indication: MUSCLE SPASMS
     Dosage: 5 GTT, 3X/DAY
     Route: 048
     Dates: start: 20130415, end: 20130418
  3. KEPPRA [Suspect]
     Indication: EPILEPSY
     Dosage: 500 MG, 2X/DAY
     Route: 048
     Dates: start: 201212
  4. ZELITREX [Concomitant]
  5. IRINOTECAN [Concomitant]
  6. RAPAMUNE [Concomitant]

REACTIONS (3)
  - Coma [Recovered/Resolved]
  - Pyrexia [Unknown]
  - General physical health deterioration [Unknown]
